FAERS Safety Report 4995513-8 (Version None)
Quarter: 2006Q2

REPORT INFORMATION
  Report Type: 
  Country: None (occurrence: None)
  Receive Date: 20060504
  Receipt Date: 20060421
  Transmission Date: 20061013
  Serious: Yes (Life-Threatening, Hospitalization, Disabling)
  Sender: FDA-Public Use
  Company Number: HQWYE040728APR06

PATIENT
  Age: 49 Year
  Sex: Female

DRUGS (2)
  1. EFFEXOR XR [Suspect]
     Indication: DEPRESSION
     Dosage: RANGED FROM 37.5MG UP TO 150MG DAILY, ORAL;  150 MG 1X PER 1 DAY, ORAL
     Route: 048
     Dates: start: 19980101, end: 20040101
  2. EFFEXOR XR [Suspect]
     Indication: DEPRESSION
     Dosage: RANGED FROM 37.5MG UP TO 150MG DAILY, ORAL;  150 MG 1X PER 1 DAY, ORAL
     Route: 048
     Dates: start: 20040101, end: 20050101

REACTIONS (4)
  - DRUG WITHDRAWAL SYNDROME [None]
  - INFLUENZA LIKE ILLNESS [None]
  - SUICIDE ATTEMPT [None]
  - WEIGHT DECREASED [None]
